FAERS Safety Report 7060612-6 (Version None)
Quarter: 2010Q4

REPORT INFORMATION
  Report Type: 
  Country: None (occurrence: None)
  Receive Date: 20101025
  Receipt Date: 20101013
  Transmission Date: 20110411
  Serious: Yes (Hospitalization, Other)
  Sender: FDA-Public Use
  Company Number: FR-ELI_LILLY_AND_COMPANY-FR201009000824

PATIENT
  Age: 52 Year
  Sex: Female
  Weight: 76 kg

DRUGS (4)
  1. BYETTA [Suspect]
     Indication: DIABETES MELLITUS
     Dosage: 10 UG, DAILY (1/D)
     Route: 058
     Dates: start: 20080701, end: 20100601
  2. LANTUS [Concomitant]
     Indication: DIABETES MELLITUS
     Dosage: 32 IU, DAILY (1/D)
     Route: 058
     Dates: start: 20070101, end: 20080701
  3. DIAMICRON MR [Concomitant]
     Indication: DIABETES MELLITUS
     Dosage: 30 MG, DAILY (1/D)
     Route: 048
     Dates: start: 20020101
  4. LEVOTHYROXINE SODIUM [Concomitant]
     Indication: HYPOTHYROIDISM
     Dosage: 100 MG, DAILY (1/D)
     Route: 048

REACTIONS (2)
  - PANCREATIC NEOPLASM [None]
  - WEIGHT DECREASED [None]
